FAERS Safety Report 11289822 (Version 1)
Quarter: 2015Q3

REPORT INFORMATION
  Report Type: Spontaneous
  Country: HU (occurrence: HU)
  Receive Date: 20150721
  Receipt Date: 20150721
  Transmission Date: 20151125
  Serious: Yes (Other)
  Sender: FDA-Public Use
  Company Number: HU-WATSON-2015-15188

PATIENT
  Sex: Female

DRUGS (3)
  1. LEVOXA [Suspect]
     Active Substance: LEVOFLOXACIN
     Indication: PRODUCT USED FOR UNKNOWN INDICATION
     Dosage: 10 TABLETS
     Route: 065
  2. FEMIFLO [Suspect]
     Active Substance: FLUCONAZOLE
     Indication: VULVOVAGINITIS
     Dosage: 1 DF, DAILY FOR 10 DAYS
     Route: 048
  3. KLION /00012501/ [Suspect]
     Active Substance: METRONIDAZOLE
     Indication: VULVOVAGINITIS
     Dosage: UNK, UNKNOWN
     Route: 065

REACTIONS (1)
  - Klebsiella bacteraemia [Not Recovered/Not Resolved]
